FAERS Safety Report 16616925 (Version 1)
Quarter: 2019Q3

REPORT INFORMATION
  Report Type: Spontaneous
  Country: FR (occurrence: FR)
  Receive Date: 20190723
  Receipt Date: 20190723
  Transmission Date: 20191004
  Serious: Yes (Hospitalization)
  Sender: FDA-Public Use
  Company Number: FR-ZYDUS-038766

PATIENT
  Age: 70 Year
  Sex: Female
  Weight: 76 kg

DRUGS (21)
  1. LIDOCAINE/LIDOCAINE HYDROCHLORIDE [Concomitant]
     Indication: PRODUCT USED FOR UNKNOWN INDICATION
     Route: 042
     Dates: start: 20190521, end: 20190521
  2. KEPPRA [Suspect]
     Active Substance: LEVETIRACETAM
     Indication: EPILEPSY
     Route: 048
  3. NOREPINEPHRINE. [Concomitant]
     Active Substance: NOREPINEPHRINE
     Indication: PRODUCT USED FOR UNKNOWN INDICATION
     Dates: start: 20190521, end: 20190521
  4. KETAMINE [Concomitant]
     Active Substance: KETAMINE
     Indication: PRODUCT USED FOR UNKNOWN INDICATION
     Route: 042
     Dates: start: 20190521, end: 20190521
  5. SKENAN [Suspect]
     Active Substance: MORPHINE SULFATE
     Indication: PAIN
     Route: 048
     Dates: start: 20190523
  6. ACTISKENAN [Concomitant]
     Active Substance: MORPHINE SULFATE
     Indication: PAIN
     Route: 048
     Dates: start: 20190522, end: 20190524
  7. ROPIVACAINE/ROPIVACAINE HYDROCHLORIDE [Concomitant]
     Indication: PRODUCT USED FOR UNKNOWN INDICATION
     Route: 042
     Dates: start: 20190521, end: 20190521
  8. LANSOPRAZOLE. [Concomitant]
     Active Substance: LANSOPRAZOLE
     Indication: PRODUCT USED FOR UNKNOWN INDICATION
     Route: 048
     Dates: start: 20190522, end: 20190525
  9. MORPHINE/MORPHINE HYDROCHLORIDE/MORPHINE SULFATE/MORPHINE TARTRATE [Concomitant]
     Indication: PAIN
     Route: 040
     Dates: start: 20190521, end: 20190522
  10. DOLIPRANE [Suspect]
     Active Substance: ACETAMINOPHEN
     Indication: PAIN
     Route: 048
  11. DROPERIDOL/DROPERIDOL LACTATE [Concomitant]
     Indication: PAIN
     Route: 040
     Dates: start: 20190521, end: 20190522
  12. SUFENTANIL/SUFENTANIL CITRATE [Concomitant]
     Indication: PRODUCT USED FOR UNKNOWN INDICATION
     Route: 042
     Dates: start: 20190521, end: 20190521
  13. PROPOFOL. [Concomitant]
     Active Substance: PROPOFOL
     Indication: PRODUCT USED FOR UNKNOWN INDICATION
     Route: 042
     Dates: start: 20190521, end: 20190521
  14. RIFAMPICINE [Suspect]
     Active Substance: RIFAMPIN
     Indication: INFECTION
     Route: 048
     Dates: start: 20190525
  15. CETIRIZINE [Suspect]
     Active Substance: CETIRIZINE HYDROCHLORIDE
     Indication: RHINITIS ALLERGIC
     Route: 048
  16. LINEZOLIDE [Suspect]
     Active Substance: LINEZOLID
     Indication: INFECTION
     Route: 041
     Dates: start: 20190522, end: 20190525
  17. IRBESARTAN. [Suspect]
     Active Substance: IRBESARTAN
     Indication: HYPERTENSION
     Route: 048
  18. TAZOBACTAM/TAZOBACTAM SODIUM [Concomitant]
     Indication: INFECTION
     Route: 042
     Dates: start: 20190522, end: 20190525
  19. CEFAZOLIN [Concomitant]
     Active Substance: CEFAZOLIN
     Indication: PRODUCT USED FOR UNKNOWN INDICATION
     Route: 042
     Dates: start: 20190521, end: 20190521
  20. OFLOXACIN. [Suspect]
     Active Substance: OFLOXACIN
     Indication: INFECTION
     Route: 048
     Dates: start: 20190525, end: 20190526
  21. PIPERACILLIN. [Concomitant]
     Active Substance: PIPERACILLIN SODIUM
     Indication: INFECTION
     Route: 042
     Dates: start: 20190522, end: 20190525

REACTIONS (1)
  - Urticaria [Recovered/Resolved]

NARRATIVE: CASE EVENT DATE: 20190526
